FAERS Safety Report 4651251-2 (Version None)
Quarter: 2005Q2

REPORT INFORMATION
  Report Type: 
  Country: None (occurrence: None)
  Receive Date: 20050331
  Receipt Date: 20050131
  Transmission Date: 20051028
  Serious: No
  Sender: FDA-Public Use
  Company Number: 05P-163-0288781-00

PATIENT
  Age: 67 Year
  Sex: Female
  Weight: 62.5964 kg

DRUGS (10)
  1. HUMIRA [Suspect]
     Indication: RHEUMATOID ARTHRITIS
     Dosage: 40 MG, 1 IN 2 WK, SUBCUTANEOUS
     Route: 058
     Dates: start: 20030101, end: 20041207
  2. CELECOXIB [Concomitant]
  3. FOLIC ACID [Concomitant]
  4. PREDNISONE TAB [Concomitant]
  5. METHOTREXATE [Concomitant]
  6. ASCORBIC ACID [Concomitant]
  7. ERGOCALCIFEROL [Concomitant]
  8. CYANOCOBALAMIN [Concomitant]
  9. IBUPROFEN [Concomitant]
  10. MULTI-VITAMINS [Concomitant]

REACTIONS (1)
  - HERPES ZOSTER [None]
